FAERS Safety Report 6465223-9 (Version None)
Quarter: 2009Q4

REPORT INFORMATION
  Report Type: 
  Country: None (occurrence: None)
  Receive Date: 20091119
  Receipt Date: 20090915
  Transmission Date: 20100525
  Serious: No
  Sender: FDA-Public Use
  Company Number: WAES 0909USA02027

PATIENT
  Age: 79 Year
  Sex: Male

DRUGS (10)
  1. JANUVIA [Suspect]
     Indication: DIABETES MELLITUS
     Dosage: 100 MG/DAILY/PO
     Route: 048
     Dates: start: 20090913
  2. AVAPRO [Concomitant]
  3. COUMADIN [Concomitant]
  4. VYTORIN [Concomitant]
  5. ZANTAC [Concomitant]
  6. AMILORIDE HYDROCHLORIDE [Concomitant]
  7. DIGOXIN [Concomitant]
  8. GLUCOSAMINE [Concomitant]
  9. INDAPAMIDE [Concomitant]
  10. OMEPRAZOLE [Concomitant]

REACTIONS (1)
  - BLOOD GLUCOSE INCREASED [None]
